FAERS Safety Report 16763602 (Version 2)
Quarter: 2019Q4

REPORT INFORMATION
  Report Type: Report from Study
  Country: IT (occurrence: IT)
  Receive Date: 20190902
  Receipt Date: 20191108
  Transmission Date: 20200122
  Serious: Yes (Other)
  Sender: FDA-Public Use
  Company Number: IT-PFIZER INC-2019373363

PATIENT
  Age: 73 Year
  Sex: Female

DRUGS (12)
  1. TOTALIP [Concomitant]
     Active Substance: ATORVASTATIN
     Indication: DYSLIPIDAEMIA
     Dosage: 40 MG, UNK
     Route: 048
  2. SERTRALINE HCL [Suspect]
     Active Substance: SERTRALINE HYDROCHLORIDE
     Indication: MOOD ALTERED
     Dosage: 100 MG, 1X/DAY
     Route: 048
     Dates: start: 20190529, end: 20190701
  3. CARDIOASPIRIN [Concomitant]
     Active Substance: ASPIRIN
     Indication: PROPHYLAXIS
     Dosage: 100 MG, UNK
     Route: 048
  4. LORAZEPAM. [Suspect]
     Active Substance: LORAZEPAM
     Indication: INSOMNIA
     Dosage: 60 GTT, 1X/DAY
     Route: 048
     Dates: start: 20190529, end: 20190701
  5. DELTACORTENE [Concomitant]
     Active Substance: PREDNISONE
     Indication: HYPERTENSION
     Dosage: 5 MG, UNK
     Route: 048
  6. APIDRA [Concomitant]
     Active Substance: INSULIN GLULISINE
     Indication: TYPE 2 DIABETES MELLITUS
     Dosage: 15 DF, UNK
     Route: 058
  7. LYRICA [Concomitant]
     Active Substance: PREGABALIN
     Indication: TYPE 2 DIABETES MELLITUS
     Dosage: 4 DF, UNK
     Route: 048
  8. PANTOPRAZOLE SODIUM SESQUIHYDRATE [Concomitant]
     Active Substance: PANTOPRAZOLE SODIUM
     Indication: GASTROOESOPHAGEAL REFLUX DISEASE
     Dosage: 20 MG, UNK
     Route: 048
  9. LANTUS [Concomitant]
     Active Substance: INSULIN GLARGINE
     Indication: TYPE 2 DIABETES MELLITUS
     Dosage: 12 DF, UNK
     Route: 058
  10. BISOPROLOL FUMARATE. [Concomitant]
     Active Substance: BISOPROLOL FUMARATE
     Indication: HYPERTENSION
     Dosage: 2.5 MG, UNK
     Route: 048
     Dates: start: 20190529
  11. BACTRIM [Concomitant]
     Active Substance: SULFAMETHOXAZOLE\TRIMETHOPRIM
     Indication: ANTIBIOTIC PROPHYLAXIS
     Dosage: 1 DF, UNK
     Route: 048
  12. RAMIPRIL. [Concomitant]
     Active Substance: RAMIPRIL
     Indication: HYPERTENSION
     Dosage: 2.5 MG, UNK
     Route: 048
     Dates: start: 20190529

REACTIONS (1)
  - Sopor [Recovering/Resolving]

NARRATIVE: CASE EVENT DATE: 20190701
